FAERS Safety Report 11541185 (Version 14)
Quarter: 2018Q2

REPORT INFORMATION
  Report Type: Spontaneous
  Country: US (occurrence: US)
  Receive Date: 20150923
  Receipt Date: 20180426
  Transmission Date: 20180711
  Serious: Yes (Death, Hospitalization)
  Sender: FDA-Public Use
  Company Number: US-ACTELION-A-NJ2015-124131

PATIENT
  Age: 66 Year
  Sex: Female

DRUGS (16)
  1. OMEPRAZOLE. [Concomitant]
     Active Substance: OMEPRAZOLE
  2. VELETRI [Suspect]
     Active Substance: EPOPROSTENOL
     Dosage: 8 NG/KG, PER MIN
     Route: 042
     Dates: start: 20150707
  3. ASPIRIN. [Concomitant]
     Active Substance: ASPIRIN
  4. TORSEMIDE. [Concomitant]
     Active Substance: TORSEMIDE
  5. DERMADEX [Concomitant]
  6. EPLERENONE. [Concomitant]
     Active Substance: EPLERENONE
  7. VELETRI [Suspect]
     Active Substance: EPOPROSTENOL
     Dosage: 25.8 NG/KG, PER MIN
     Route: 042
     Dates: start: 20150812
  8. LISINOPRIL. [Concomitant]
     Active Substance: LISINOPRIL
  9. CARVEDILOL. [Concomitant]
     Active Substance: CARVEDILOL
  10. GLIMEPIRIDE. [Concomitant]
     Active Substance: GLIMEPIRIDE
  11. FLONASE [Concomitant]
     Active Substance: FLUTICASONE PROPIONATE
  12. SILDENAFIL. [Concomitant]
     Active Substance: SILDENAFIL
     Dosage: 20 MG, UNK
     Dates: start: 20160426
  13. VELETRI [Suspect]
     Active Substance: EPOPROSTENOL
     Indication: PULMONARY ARTERIAL HYPERTENSION
     Dosage: 30.4 NG/KG, PER MIN
     Route: 042
     Dates: start: 20161114
  14. VELETRI [Suspect]
     Active Substance: EPOPROSTENOL
     Dosage: 50 NG/KG, PER MIN
     Route: 042
  15. ALLOPURINOL. [Concomitant]
     Active Substance: ALLOPURINOL
  16. POTASSIUM [Concomitant]
     Active Substance: POTASSIUM

REACTIONS (15)
  - Death [Fatal]
  - Nausea [Unknown]
  - Vomiting [Not Recovered/Not Resolved]
  - Constipation [Unknown]
  - Chest pain [Unknown]
  - Fluid overload [Recovered/Resolved]
  - Pain in jaw [Unknown]
  - Weight decreased [Unknown]
  - Dyspnoea [Unknown]
  - Oedema peripheral [Not Recovered/Not Resolved]
  - Device issue [Recovered/Resolved]
  - Weight increased [Not Recovered/Not Resolved]
  - Decreased appetite [Unknown]
  - Drug dose omission [Recovered/Resolved]
  - Diarrhoea [Recovering/Resolving]

NARRATIVE: CASE EVENT DATE: 20150910
